FAERS Safety Report 7857260-4 (Version None)
Quarter: 2011Q4

REPORT INFORMATION
  Report Type: 
  Country: None (occurrence: None)
  Receive Date: 20111027
  Receipt Date: 20111017
  Transmission Date: 20120403
  Serious: Yes (Hospitalization)
  Sender: FDA-Public Use
  Company Number: US-BIOGENIDEC-2011BI039581

PATIENT
  Age: 38 Year
  Sex: Female

DRUGS (1)
  1. AVONEX [Suspect]
     Indication: MULTIPLE SCLEROSIS
     Route: 030
     Dates: start: 20101214

REACTIONS (7)
  - LOSS OF CONSCIOUSNESS [None]
  - FATIGUE [None]
  - ARRHYTHMIA [None]
  - PNEUMONIA [None]
  - STRESS [None]
  - MYOCARDIAL INFARCTION [None]
  - SYNCOPE [None]
